FAERS Safety Report 20288998 (Version 6)
Quarter: 2023Q1

REPORT INFORMATION
  Report Type: Report from Study
  Country: CA (occurrence: CA)
  Receive Date: 20220104
  Receipt Date: 20230130
  Transmission Date: 20230417
  Serious: Yes (Other)
  Sender: FDA-Public Use
  Company Number: CA-SA-SAC20211227000487

PATIENT
  Age: 59 Year
  Sex: Female

DRUGS (18)
  1. ISATUXIMAB [Suspect]
     Active Substance: ISATUXIMAB
     Indication: Plasma cell myeloma
     Dosage: 460 MG, QW
     Route: 042
     Dates: start: 20211216
  2. VALACYCLOVIR [Concomitant]
     Active Substance: VALACYCLOVIR HYDROCHLORIDE
     Dosage: 1,D-DROPS 2,000 -3,000 IU
  3. CYCLOSPORINE [Concomitant]
     Active Substance: CYCLOSPORINE
     Dosage: CYCLOSPORINE 0.05% W/V EYE DROPS 1 DROP/EYE
  4. DEXAMETHASONE [Concomitant]
     Active Substance: DEXAMETHASONE
     Dosage: DEXAMETHASONE 4MG X10 TABLETS (40MG) TAKE AFTER FOOD
  5. EPREX [Concomitant]
     Active Substance: ERYTHROPOIETIN
  6. ASPIRIN [Concomitant]
     Active Substance: ASPIRIN
  7. PROGESTERONE [Concomitant]
     Active Substance: PROGESTERONE
  8. ESTROGEL [Concomitant]
     Active Substance: ESTRADIOL
  9. ZOMETA [Concomitant]
     Active Substance: ZOLEDRONIC ACID
     Route: 041
  10. FILGRASTIM [Concomitant]
     Active Substance: FILGRASTIM
     Dosage: 300MCG/.5ML
  11. COLESEVELAM HYDROCHLORIDE [Concomitant]
     Active Substance: COLESEVELAM HYDROCHLORIDE
  12. OMEGA-3 FATTY ACIDS [Concomitant]
     Active Substance: OMEGA-3 FATTY ACIDS
  13. DIETARY SUPPLEMENT [Concomitant]
     Active Substance: DIETARY SUPPLEMENT
     Dosage: 1000MG
  14. SOTROVIMAB [Concomitant]
     Active Substance: SOTROVIMAB
  15. NUTRASEA+D [Concomitant]
  16. ACETAMINOPHEN\ASCORBIC ACID [Concomitant]
     Active Substance: ACETAMINOPHEN\ASCORBIC ACID
  17. NUTRASEA KIDS OMEGA 3 [Concomitant]
     Dosage: 1250 MG
  18. VITAMIN D NOS [Concomitant]
     Active Substance: VITAMIN D NOS

REACTIONS (8)
  - Immunosuppression [Not Recovered/Not Resolved]
  - Oropharyngeal pain [Not Recovered/Not Resolved]
  - Cough [Not Recovered/Not Resolved]
  - SARS-CoV-2 test positive [Not Recovered/Not Resolved]
  - COVID-19 [Not Recovered/Not Resolved]
  - Treatment delayed [Unknown]
  - Inappropriate schedule of product administration [Recovered/Resolved]
  - Product use issue [Not Recovered/Not Resolved]

NARRATIVE: CASE EVENT DATE: 20211219
